FAERS Safety Report 16098341 (Version 1)
Quarter: 2019Q1

REPORT INFORMATION
  Report Type: Spontaneous
  Country: US (occurrence: US)
  Receive Date: 20190321
  Receipt Date: 20190321
  Transmission Date: 20190418
  Serious: No
  Sender: FDA-Public Use
  Company Number: US-JNJFOC-20190309446

PATIENT
  Sex: Female

DRUGS (1)
  1. IMBRUVICA [Suspect]
     Active Substance: IBRUTINIB
     Indication: EXPOSURE VIA PARTNER
     Route: 065

REACTIONS (2)
  - Exposure via body fluid [Unknown]
  - Vulvovaginal discomfort [Unknown]
